FAERS Safety Report 4427041-2 (Version None)
Quarter: 2004Q3

REPORT INFORMATION
  Report Type: 
  Country: None (occurrence: None)
  Receive Date: 20040726
  Receipt Date: 20040419
  Transmission Date: 20050211
  Serious: No
  Sender: FDA-Public Use
  Company Number: US_980910634

PATIENT
  Age: 69 Year
  Sex: Female
  Weight: 61 kg

DRUGS (6)
  1. EVISTA [Suspect]
     Indication: HOT FLUSH
     Dosage: 60 MG DAY
     Dates: start: 19980601
  2. EVISTA [Suspect]
     Indication: MENOPAUSAL SYMPTOMS
     Dosage: 60 MG DAY
     Dates: start: 19980601
  3. FORTEO [Suspect]
     Dates: start: 20040416, end: 20040419
  4. PREMARIN [Concomitant]
  5. VITAMIN E [Concomitant]
  6. VITAMIN B COMPLEX CAP [Concomitant]

REACTIONS (6)
  - DIZZINESS [None]
  - HEADACHE [None]
  - HOT FLUSH [None]
  - INSOMNIA [None]
  - NAUSEA [None]
  - PULSE PRESSURE INCREASED [None]
